FAERS Safety Report 8603114-5 (Version None)
Quarter: 2012Q3

REPORT INFORMATION
  Report Type: 
  Country: None (occurrence: None)
  Receive Date: 20120817
  Receipt Date: 20120208
  Transmission Date: 20120928
  Serious: No
  Sender: FDA-Public Use
  Company Number: US-GLAXOSMITHKLINE-A0965157A

PATIENT
  Age: 47 Year
  Sex: Female

DRUGS (1)
  1. TAGAMET HB 200 [Suspect]
     Indication: DYSPEPSIA
     Dates: start: 20120207, end: 20120207

REACTIONS (2)
  - VOMITING [None]
  - ABDOMINAL DISCOMFORT [None]
